FAERS Safety Report 25576662 (Version 1)
Quarter: 2025Q3

REPORT INFORMATION
  Report Type: Spontaneous
  Country: CA (occurrence: CA)
  Receive Date: 20250718
  Receipt Date: 20250718
  Transmission Date: 20251021
  Serious: Yes (Other)
  Sender: TEVA
  Company Number: CA-TEVA-VS-3350481

PATIENT
  Age: 43 Year
  Sex: Female

DRUGS (9)
  1. REPAGLINIDE [Suspect]
     Active Substance: REPAGLINIDE
     Indication: Cystic fibrosis related diabetes
     Route: 065
  2. REPAGLINIDE [Suspect]
     Active Substance: REPAGLINIDE
     Indication: Cystic fibrosis related diabetes
     Route: 065
  3. REPAGLINIDE [Suspect]
     Active Substance: REPAGLINIDE
     Indication: Cystic fibrosis related diabetes
     Route: 065
  4. REPAGLINIDE [Suspect]
     Active Substance: REPAGLINIDE
     Indication: Cystic fibrosis related diabetes
     Route: 065
  5. REPAGLINIDE [Suspect]
     Active Substance: REPAGLINIDE
     Indication: Cystic fibrosis related diabetes
     Route: 065
  6. REPAGLINIDE [Suspect]
     Active Substance: REPAGLINIDE
     Indication: Cystic fibrosis related diabetes
     Route: 065
  7. TRIKAFTA [Interacting]
     Active Substance: ELEXACAFTOR\IVACAFTOR\TEZACAFTOR
     Indication: Cystic fibrosis
     Route: 048
  8. TRIKAFTA [Interacting]
     Active Substance: ELEXACAFTOR\IVACAFTOR\TEZACAFTOR
     Indication: Cystic fibrosis
     Route: 048
  9. INSULIN HUMAN [Concomitant]
     Active Substance: INSULIN HUMAN
     Indication: Cystic fibrosis related diabetes

REACTIONS (3)
  - Aspartate aminotransferase increased [Recovered/Resolved]
  - Alanine aminotransferase increased [Recovered/Resolved]
  - Drug interaction [Recovered/Resolved]
